FAERS Safety Report 9323005 (Version 1)
Quarter: 2013Q2

REPORT INFORMATION
  Report Type: Spontaneous
  Country: JP (occurrence: JP)
  Receive Date: 20130603
  Receipt Date: 20130603
  Transmission Date: 20140414
  Serious: Yes (Other)
  Sender: FDA-Public Use
  Company Number: PHHY2013JP053503

PATIENT
  Age: 63 Year
  Sex: Female

DRUGS (3)
  1. VINCRISTINE [Suspect]
     Indication: PLASMA CELL MYELOMA
     Dosage: 0.4 MG, PER DAY
     Route: 042
  2. DEXAMETHASONE [Suspect]
     Indication: PLASMA CELL MYELOMA
     Dosage: 40 MG, PER DAY
  3. ADRIAMYCIN [Suspect]
     Indication: PLASMA CELL MYELOMA
     Dosage: 15 MG, UNK

REACTIONS (7)
  - Tumour lysis syndrome [Recovering/Resolving]
  - Fatigue [Recovering/Resolving]
  - Decreased appetite [Recovering/Resolving]
  - Blood uric acid increased [Recovered/Resolved]
  - Blood creatinine increased [Recovered/Resolved]
  - Blood potassium increased [Recovered/Resolved]
  - Blood calcium decreased [Recovered/Resolved]
